FAERS Safety Report 7650223-3 (Version None)
Quarter: 2011Q3

REPORT INFORMATION
  Report Type: 
  Country: None (occurrence: None)
  Receive Date: 20110802
  Receipt Date: 20110728
  Transmission Date: 20111222
  Serious: Yes (Hospitalization)
  Sender: FDA-Public Use
  Company Number: US-ROCHE-789182

PATIENT
  Sex: Female

DRUGS (2)
  1. PEGASYS [Suspect]
     Indication: HEPATITIS C
     Dosage: FORM VIAL
     Route: 058
     Dates: start: 20110622
  2. RIBAVIRIN [Suspect]
     Indication: HEPATITIS C
     Dosage: 1200 MG PER DAY IN DIVIDED DOSES
     Route: 048
     Dates: start: 20110622

REACTIONS (4)
  - FATIGUE [None]
  - BRADYCARDIA [None]
  - PRURITUS [None]
  - BLOOD SODIUM DECREASED [None]
